FAERS Safety Report 24408887 (Version 1)
Quarter: 2024Q4

REPORT INFORMATION
  Report Type: Spontaneous
  Country: CN (occurrence: CN)
  Receive Date: 20241007
  Receipt Date: 20241007
  Transmission Date: 20250115
  Serious: Yes (Hospitalization)
  Sender: BEIGENE
  Company Number: CN-BEIGENE-BGN-2024-015688

PATIENT

DRUGS (9)
  1. TISLELIZUMAB [Suspect]
     Active Substance: TISLELIZUMAB
     Indication: Nasopharyngeal cancer stage IV
     Dosage: 200 MILLIGRAM
     Dates: start: 20240301
  2. TISLELIZUMAB [Suspect]
     Active Substance: TISLELIZUMAB
     Indication: Metastases to lymph nodes
     Dosage: 200 MILLIGRAM
     Route: 041
     Dates: start: 20240802
  3. TISLELIZUMAB [Suspect]
     Active Substance: TISLELIZUMAB
     Indication: Metastases to liver
  4. DOCETAXEL [Suspect]
     Active Substance: DOCETAXEL
     Indication: Nasopharyngeal cancer stage IV
     Dosage: 130 MILLIGRAM D1
     Dates: start: 20240302
  5. DOCETAXEL [Suspect]
     Active Substance: DOCETAXEL
     Indication: Metastases to lymph nodes
     Dosage: 130 MILLIGRAM D1
     Route: 041
     Dates: start: 20240803
  6. DOCETAXEL [Suspect]
     Active Substance: DOCETAXEL
     Indication: Metastases to liver
  7. NEDAPLATIN [Suspect]
     Active Substance: NEDAPLATIN
     Indication: Nasopharyngeal cancer stage IV
     Dosage: 150 MILLIGRAM
     Dates: start: 20240302
  8. NEDAPLATIN [Suspect]
     Active Substance: NEDAPLATIN
     Indication: Metastases to lymph nodes
     Dosage: 150 MILLIGRAM
     Route: 041
     Dates: start: 20240803
  9. NEDAPLATIN [Suspect]
     Active Substance: NEDAPLATIN
     Indication: Metastases to liver

REACTIONS (1)
  - Myelosuppression [Recovering/Resolving]

NARRATIVE: CASE EVENT DATE: 20240903
